APPROVED DRUG PRODUCT: PREDNISOLONE SODIUM PHOSPHATE
Active Ingredient: PREDNISOLONE SODIUM PHOSPHATE
Strength: EQ 5MG BASE/5ML
Dosage Form/Route: SOLUTION;ORAL
Application: A075099 | Product #001
Applicant: PHARMOBEDIENT CONSULTING
Approved: Jun 28, 2002 | RLD: No | RS: No | Type: DISCN